FAERS Safety Report 7784186-7 (Version None)
Quarter: 2011Q3

REPORT INFORMATION
  Report Type: 
  Country: None (occurrence: None)
  Receive Date: 20110928
  Receipt Date: 20110725
  Transmission Date: 20111222
  Serious: Yes (Hospitalization, Disabling, Other)
  Sender: FDA-Public Use
  Company Number: SE-UCBSA-033066

PATIENT
  Sex: Male

DRUGS (9)
  1. METHOTREXATE [Suspect]
     Indication: RHEUMATOID ARTHRITIS
     Dosage: 12.5, 12.5 MG, 10MG
     Route: 048
     Dates: start: 20080407, end: 20110427
  2. ORUDIS [Concomitant]
     Indication: PAIN
  3. IBUPROFEN [Concomitant]
  4. PREDNISOLONE [Suspect]
     Indication: RHEUMATOID ARTHRITIS
     Route: 048
     Dates: start: 20080407
  5. TRAMADOL [Concomitant]
     Indication: PAIN
     Dosage: 50 MG 1X1-3 TOTAL DAILY DOSE: 50-150MG
  6. ALVEDON [Concomitant]
     Indication: PAIN
     Dosage: 1G 1X1-4 TOTAL DAILY DOSE: 1G-4G
  7. VIAGRA [Concomitant]
     Indication: ERECTILE DYSFUNCTION
     Dosage: 50 MG
  8. NSAIDS-COX 1 [Concomitant]
     Dates: start: 20080407
  9. CIMZIA [Suspect]
     Indication: RHEUMATOID ARTHRITIS
     Dosage: 200 MGN
     Route: 058
     Dates: start: 20110113, end: 20110427

REACTIONS (2)
  - PROSTATE CANCER METASTATIC [None]
  - PARAPLEGIA [None]
